FAERS Safety Report 14149618 (Version 1)
Quarter: 2017Q4

REPORT INFORMATION
  Report Type: Spontaneous
  Country: GB (occurrence: GB)
  Receive Date: 20171101
  Receipt Date: 20171101
  Transmission Date: 20180321
  Serious: Yes (Other)
  Sender: FDA-Public Use
  Company Number: GB-TEVA-820048ACC

PATIENT
  Age: 69 Year
  Sex: Male
  Weight: 125 kg

DRUGS (10)
  1. OILATUM CREAM [Concomitant]
     Dates: start: 20170824
  2. SPIRONOLACTONE. [Suspect]
     Active Substance: SPIRONOLACTONE
     Route: 048
  3. TILDIEM RETARD [Concomitant]
     Active Substance: DILTIAZEM HYDROCHLORIDE
     Dosage: 240 MILLIGRAM DAILY;
     Dates: start: 20170727
  4. LIQUID PARAFFIN [Concomitant]
     Dates: start: 20170727
  5. TAMSULOSIN [Concomitant]
     Active Substance: TAMSULOSIN
     Dosage: 400 MICROGRAM DAILY;
     Dates: start: 20170824
  6. WARFARIN [Concomitant]
     Active Substance: WARFARIN
     Dosage: AS INSTRUCTIONS IN YELLOW BOOK
     Dates: start: 20170727
  7. BISOPROLOL [Concomitant]
     Active Substance: BISOPROLOL
     Dosage: 10 MILLIGRAM DAILY;
     Dates: start: 20170727
  8. BUTRANS [Concomitant]
     Active Substance: BUPRENORPHINE
     Dosage: 10MICROGRAMS/HOUR
     Route: 062
     Dates: start: 20170824
  9. SOLIFENACIN [Concomitant]
     Active Substance: SOLIFENACIN
     Dosage: 5 MILLIGRAM DAILY;
     Dates: start: 20170727
  10. PERINDOPRIL ERBUMINE. [Concomitant]
     Active Substance: PERINDOPRIL ERBUMINE
     Dosage: 8 MILLIGRAM DAILY;
     Dates: start: 20170727

REACTIONS (1)
  - Gynaecomastia [Recovered/Resolved]
